FAERS Safety Report 9712265 (Version 1)
Quarter: 2013Q4

REPORT INFORMATION
  Report Type: Spontaneous
  Country: US (occurrence: US)
  Receive Date: 20131126
  Receipt Date: 20131126
  Transmission Date: 20140711
  Serious: No
  Sender: FDA-Public Use
  Company Number: US-BRISTOL-MYERS SQUIBB COMPANY-18852574

PATIENT
  Sex: Female

DRUGS (1)
  1. BYDUREON [Suspect]
     Dosage: NO OF INJ:10

REACTIONS (6)
  - Nausea [Unknown]
  - Eructation [Unknown]
  - Gastrointestinal sounds abnormal [Unknown]
  - Flank pain [Unknown]
  - Injection site pruritus [Unknown]
  - Injection site haematoma [Unknown]
